FAERS Safety Report 8580366-1 (Version None)
Quarter: 2012Q3

REPORT INFORMATION
  Report Type: 
  Country: None (occurrence: None)
  Receive Date: 20120808
  Receipt Date: 20110606
  Transmission Date: 20120928
  Serious: Yes (Hospitalization, Other)
  Sender: FDA-Public Use
  Company Number: US-BRISTOL-MYERS SQUIBB COMPANY-14956783

PATIENT
  Age: 30 Year
  Sex: Male

DRUGS (3)
  1. CLARITIN [Concomitant]
     Dates: start: 20091231
  2. INDERAL [Concomitant]
     Dates: start: 20090206
  3. ARIPIPRAZOLE [Suspect]
     Indication: SCHIZOPHRENIA
     Dates: start: 20090708, end: 20091228

REACTIONS (1)
  - PSYCHOTIC DISORDER [None]
